FAERS Safety Report 21257547 (Version 2)
Quarter: 2022Q3

REPORT INFORMATION
  Report Type: Spontaneous
  Country: US (occurrence: US)
  Receive Date: 20220826
  Receipt Date: 20220919
  Transmission Date: 20221026
  Serious: No
  Sender: FDA-Public Use
  Company Number: US-PFIZER INC-202201070296

PATIENT
  Age: 37 Year
  Sex: Female

DRUGS (2)
  1. NIVESTYM [Suspect]
     Active Substance: FILGRASTIM-AAFI
     Dosage: 0.3 MG (INJECT 300 MCG)
     Route: 058
  2. NIVESTYM [Suspect]
     Active Substance: FILGRASTIM-AAFI
     Dosage: 300 UG, DAILY (300 MCG/0.5 ML/ DAILY FOR 4 DOSES)
     Route: 058

REACTIONS (2)
  - Illness [Unknown]
  - Malaise [Unknown]
